FAERS Safety Report 7557746-6 (Version None)
Quarter: 2011Q2

REPORT INFORMATION
  Report Type: 
  Country: None (occurrence: None)
  Receive Date: 20110620
  Receipt Date: 20110606
  Transmission Date: 20111010
  Serious: Yes (Life-Threatening, Hospitalization)
  Sender: FDA-Public Use
  Company Number: JP-MERCK-1104USA03903

PATIENT
  Age: 82 Year
  Sex: Male
  Weight: 67 kg

DRUGS (24)
  1. AMARYL [Concomitant]
     Dosage: DAILY DOSAGE UNKNOWN
     Route: 048
     Dates: start: 20100127, end: 20110224
  2. MICARDIS [Concomitant]
     Route: 048
     Dates: start: 20110412
  3. CONIEL [Concomitant]
     Route: 048
     Dates: start: 20110412
  4. LIPITOR [Concomitant]
     Route: 048
     Dates: start: 20110412
  5. JANUVIA [Suspect]
     Route: 048
     Dates: start: 20110412
  6. AMARYL [Concomitant]
     Route: 065
     Dates: start: 20110412
  7. MICARDIS [Concomitant]
     Indication: HYPERTENSION
     Route: 048
     Dates: start: 20110126, end: 20110329
  8. CLARITIN [Concomitant]
     Dosage: TABLETS
     Route: 048
     Dates: start: 20110412
  9. LIPITOR [Concomitant]
     Indication: DYSLIPIDAEMIA
     Route: 048
     Dates: start: 20060428, end: 20110329
  10. NELBIS [Concomitant]
     Route: 048
     Dates: start: 20110412
  11. ALLOPURINOL [Concomitant]
     Route: 048
     Dates: start: 20110412
  12. MICARDIS [Concomitant]
     Route: 048
     Dates: start: 20060428, end: 20110125
  13. LANSOPRAZOLE [Concomitant]
     Dosage: DIVIDED DOSE FREQUENCY UNKNOWN
     Route: 048
     Dates: start: 20110412
  14. LANTUS [Concomitant]
     Indication: DIABETES MELLITUS
     Dosage: DAILY DOSAGE UNKNOWN
     Route: 058
  15. GLYBURIDE [Concomitant]
     Indication: DIABETES MELLITUS
     Route: 048
     Dates: start: 20060526, end: 20100126
  16. ACTOS [Concomitant]
     Indication: DIABETES MELLITUS
     Dosage: DAILY DOSAGE UNKNOWN
     Route: 048
     Dates: start: 20061027, end: 20110329
  17. ACTOS [Concomitant]
     Dosage: DAILY DOSAGE UNKNOWN
     Route: 048
     Dates: start: 20110412
  18. NELBIS [Concomitant]
     Indication: DIABETES MELLITUS
     Route: 048
     Dates: start: 20061027, end: 20110329
  19. ALLOPURINOL [Concomitant]
     Indication: HYPERURICAEMIA
     Route: 048
     Dates: start: 20060428, end: 20110329
  20. CLARITIN [Concomitant]
     Indication: URTICARIA CHRONIC
     Dosage: TABLETS
     Route: 048
     Dates: start: 20060326, end: 20110329
  21. JANUVIA [Suspect]
     Indication: DIABETES MELLITUS
     Route: 048
     Dates: start: 20110225, end: 20110329
  22. AMARYL [Concomitant]
     Indication: DIABETES MELLITUS
     Dosage: DAILY DOSAGE UNKNOWN
     Route: 048
     Dates: start: 20110225, end: 20110329
  23. CONIEL [Concomitant]
     Indication: HYPERTENSION
     Route: 048
     Dates: start: 20070314, end: 20110329
  24. HUMALOG [Concomitant]
     Indication: DIABETES MELLITUS
     Dosage: DAILY DOSAGE UNKNOWN
     Route: 058

REACTIONS (4)
  - GASTRIC CANCER [None]
  - DUODENAL ULCER PERFORATION [None]
  - ILEUS [None]
  - PERITONITIS [None]
